FAERS Safety Report 21811051 (Version 3)
Quarter: 2023Q1

REPORT INFORMATION
  Report Type: Other
  Country: US (occurrence: None)
  Receive Date: 20230103
  Receipt Date: 20230118
  Transmission Date: 20230418
  Serious: Yes (Hospitalization, Other)
  Sender: FDA-Public Use
  Company Number: US-ROCHE-3254787

PATIENT
  Age: 76 Year
  Sex: Male

DRUGS (2)
  1. ALECENSA [Suspect]
     Active Substance: ALECTINIB HYDROCHLORIDE
     Indication: Lung neoplasm malignant
     Dosage: TAKE 4 CAPSULE(S) BY MOUTH TWICE A DAY
     Route: 048
  2. ALECENSA [Suspect]
     Active Substance: ALECTINIB HYDROCHLORIDE
     Dosage: TAKE 3 CAPSULE(S) BY MOUTH TWICE A DAY WITH FOOD
     Route: 048

REACTIONS (4)
  - Myocardial infarction [Unknown]
  - Peripheral swelling [Unknown]
  - Pneumonia [Unknown]
  - Product dose omission issue [Unknown]
